FAERS Safety Report 7430200-8 (Version None)
Quarter: 2011Q2

REPORT INFORMATION
  Report Type: 
  Country: None (occurrence: None)
  Receive Date: 20110421
  Receipt Date: 20100607
  Transmission Date: 20111010
  Serious: No
  Sender: FDA-Public Use
  Company Number: US-ASTRAZENECA-2010SE26444

PATIENT
  Age: 62 Year
  Sex: Male
  Weight: 106.6 kg

DRUGS (3)
  1. TOPROL-XL [Suspect]
     Indication: HYPERTENSION
     Route: 048
     Dates: start: 20070101, end: 20070101
  2. TOPROL-XL [Suspect]
     Route: 048
     Dates: start: 20070101
  3. TOPROL-XL [Suspect]
     Route: 048
     Dates: start: 20070101, end: 20070101

REACTIONS (3)
  - ASTHENIA [None]
  - DIZZINESS [None]
  - DIARRHOEA [None]
